FAERS Safety Report 13256751 (Version 1)
Quarter: 2017Q1

REPORT INFORMATION
  Report Type: Spontaneous
  Country: US (occurrence: US)
  Receive Date: 20170221
  Receipt Date: 20170221
  Transmission Date: 20170428
  Serious: Yes (Life-Threatening, Hospitalization, Disabling, Other)
  Sender: FDA-Public Use
  Company Number: None

PATIENT
  Age: 49 Year
  Sex: Male
  Weight: 112.5 kg

DRUGS (1)
  1. AXIRON [Suspect]
     Active Substance: TESTOSTERONE

REACTIONS (5)
  - Lethargy [None]
  - Oedema [None]
  - Dyspnoea [None]
  - Renal failure [None]
  - Dialysis [None]

NARRATIVE: CASE EVENT DATE: 20140101
